FAERS Safety Report 14834242 (Version 3)
Quarter: 2018Q4

REPORT INFORMATION
  Report Type: Report from Study
  Country: US (occurrence: US)
  Receive Date: 20180501
  Receipt Date: 20181002
  Transmission Date: 20190204
  Serious: Yes (Hospitalization, Other)
  Sender: FDA-Public Use
  Company Number: US-TAKEDA-2018TUS013127

PATIENT
  Sex: Female

DRUGS (1)
  1. PONATINIB [Suspect]
     Active Substance: PONATINIB
     Indication: CHRONIC MYELOID LEUKAEMIA
     Dosage: 45 MG, QOD
     Route: 048
     Dates: start: 201609

REACTIONS (10)
  - Pancreatitis [Recovered/Resolved]
  - Pain in extremity [Unknown]
  - Nausea [Recovered/Resolved]
  - Adverse drug reaction [Unknown]
  - Microcytic anaemia [Unknown]
  - Abdominal pain [Recovered/Resolved]
  - Back pain [Unknown]
  - Off label use [Unknown]
  - Intentional product misuse [Unknown]
  - Decreased appetite [Recovered/Resolved]
